FAERS Safety Report 5831046-4 (Version None)
Quarter: 2008Q3

REPORT INFORMATION
  Report Type: 
  Country: None (occurrence: None)
  Receive Date: 20080801
  Receipt Date: 20080522
  Transmission Date: 20090109
  Serious: Yes (Disabling)
  Sender: FDA-Public Use
  Company Number: US-BRISTOL-MYERS SQUIBB COMPANY-14119820

PATIENT
  Age: 82 Year
  Sex: Male
  Weight: 86 kg

DRUGS (3)
  1. COUMADIN [Suspect]
     Indication: THROMBOSIS
     Dates: start: 20070930, end: 20080424
  2. FOLIC ACID [Concomitant]
  3. PREDNISONE [Concomitant]

REACTIONS (1)
  - RASH ERYTHEMATOUS [None]
